FAERS Safety Report 6975028-8 (Version None)
Quarter: 2010Q3

REPORT INFORMATION
  Report Type: 
  Country: None (occurrence: None)
  Receive Date: 20100910
  Receipt Date: 20090121
  Transmission Date: 20110219
  Serious: No
  Sender: FDA-Public Use
  Company Number: US-WYE-H07835209

PATIENT
  Sex: Female
  Weight: 127.12 kg

DRUGS (6)
  1. PRISTIQ [Suspect]
     Indication: DEPRESSION
     Route: 048
     Dates: start: 20081201
  2. NEXIUM [Concomitant]
  3. ALEVE (CAPLET) [Concomitant]
  4. DARVOCET-N 100 [Concomitant]
  5. EFFEXOR XR [Suspect]
     Dosage: 75 MG, FREQUENCY UNKNOWN
     Dates: end: 20081201
  6. AMITRIPTYLINE HCL [Concomitant]

REACTIONS (2)
  - ANXIETY [None]
  - DRUG INEFFECTIVE [None]
